FAERS Safety Report 15716375 (Version 2)
Quarter: 2019Q3

REPORT INFORMATION
  Report Type: Spontaneous
  Country: CA (occurrence: CA)
  Receive Date: 20181213
  Receipt Date: 20190731
  Transmission Date: 20191004
  Serious: Yes (Life-Threatening, Hospitalization, Other)
  Sender: FDA-Public Use
  Company Number: CA-TEVA-2018-CA-986501

PATIENT
  Age: 61 Year
  Sex: Female

DRUGS (3)
  1. ACYCLOVIR. [Concomitant]
     Active Substance: ACYCLOVIR
     Indication: EVIDENCE BASED TREATMENT
  2. ACYCLOVIR. [Concomitant]
     Active Substance: ACYCLOVIR
     Indication: IMMUNE-MEDIATED NECROTISING MYOPATHY
  3. MYCOPHENOLATE MOFETIL. [Suspect]
     Active Substance: MYCOPHENOLATE MOFETIL
     Indication: IMMUNE-MEDIATED NECROTISING MYOPATHY
     Dosage: 2 GRAM DAILY;
     Route: 065

REACTIONS (11)
  - Depressed level of consciousness [Recovered/Resolved]
  - Hallucination, visual [Recovered/Resolved]
  - Encephalopathy [Recovered/Resolved]
  - Confusional state [Recovered/Resolved]
  - Behaviour disorder [Recovered/Resolved]
  - Generalised tonic-clonic seizure [Recovered/Resolved]
  - Status epilepticus [Recovered/Resolved]
  - Psychomotor retardation [Recovered/Resolved]
  - Delusion [Recovered/Resolved]
  - Off label use [Unknown]
  - Neurotoxicity [Recovered/Resolved]
